FAERS Safety Report 5827079-4 (Version None)
Quarter: 2008Q3

REPORT INFORMATION
  Report Type: 
  Country: None (occurrence: None)
  Receive Date: 20080730
  Receipt Date: 20080721
  Transmission Date: 20090109
  Serious: Yes (Hospitalization)
  Sender: FDA-Public Use
  Company Number: B0530116A

PATIENT
  Age: 76 Year
  Sex: Male

DRUGS (4)
  1. ZOPHREN [Suspect]
     Dosage: 8MG PER DAY
     Route: 042
     Dates: start: 20080618, end: 20080618
  2. RANITIDINE HCL [Suspect]
     Indication: PREMEDICATION
     Dosage: 1UNIT PER DAY
     Route: 042
     Dates: start: 20080618, end: 20080618
  3. GEMZAR [Suspect]
     Dosage: 1UNIT CYCLIC
     Route: 042
     Dates: start: 20080618, end: 20080618
  4. SOLU-MEDROL [Suspect]
     Indication: PREMEDICATION
     Dosage: 100MG PER DAY
     Route: 042
     Dates: start: 20080618, end: 20080618

REACTIONS (6)
  - ANGINA PECTORIS [None]
  - CARDIAC FAILURE [None]
  - CONGESTIVE CARDIOMYOPATHY [None]
  - DYSPNOEA EXERTIONAL [None]
  - ELECTROCARDIOGRAM CHANGE [None]
  - MALAISE [None]
